FAERS Safety Report 20746402 (Version 1)
Quarter: 2022Q2

REPORT INFORMATION
  Report Type: Spontaneous
  Country: AR (occurrence: AR)
  Receive Date: 20220425
  Receipt Date: 20220425
  Transmission Date: 20220721
  Serious: Yes (Hospitalization, Other)
  Sender: FDA-Public Use
  Company Number: AR-PFIZER INC-2021829686

PATIENT
  Age: 78 Year
  Sex: Female

DRUGS (4)
  1. INLYTA [Suspect]
     Active Substance: AXITINIB
     Indication: Renal cancer
     Dosage: 5 MG, 1X/DAY
     Dates: start: 20210116
  2. GLAUCOTENSIL TD [Concomitant]
     Dosage: 1 DROP EVERY 12 HOURS
  3. OMEPRAZOLE [Concomitant]
     Active Substance: OMEPRAZOLE
     Dosage: UNK
  4. LEVOTHYROXINE [Concomitant]
     Active Substance: LEVOTHYROXINE
     Dosage: UNK

REACTIONS (9)
  - Condition aggravated [Unknown]
  - Glaucoma [Unknown]
  - Pain [Unknown]
  - Dyspepsia [Unknown]
  - Swelling [Unknown]
  - Gastritis [Unknown]
  - Colitis [Unknown]
  - Diarrhoea [Unknown]
  - Off label use [Unknown]

NARRATIVE: CASE EVENT DATE: 20210116
